FAERS Safety Report 25565305 (Version 1)
Quarter: 2025Q3

REPORT INFORMATION
  Report Type: Spontaneous
  Country: EU (occurrence: EU)
  Receive Date: 20250716
  Receipt Date: 20250716
  Transmission Date: 20251021
  Serious: Yes (Death, Hospitalization, Other)
  Sender: AMGEN
  Company Number: EU-AMGEN-NLDSP2025134774

PATIENT
  Age: 59 Year
  Sex: Male

DRUGS (4)
  1. DARBEPOETIN ALFA [Suspect]
     Active Substance: DARBEPOETIN ALFA
     Indication: Autoimmune haemolytic anaemia
     Route: 065
  2. BORTEZOMIB [Concomitant]
     Active Substance: BORTEZOMIB
     Indication: Haemolysis
  3. PREDNISONE [Concomitant]
     Active Substance: PREDNISONE
     Indication: Warm autoimmune haemolytic anaemia
     Dosage: 1 MILLIGRAM/KILOGRAM, QD
     Route: 065
  4. RITUXIMAB [Concomitant]
     Active Substance: RITUXIMAB
     Indication: Autoimmune haemolytic anaemia

REACTIONS (11)
  - Multiple organ dysfunction syndrome [Fatal]
  - Haemolysis [Fatal]
  - Lactic acidosis [Unknown]
  - Pulseless electrical activity [Unknown]
  - Pulmonary embolism [Unknown]
  - Renal infarct [Unknown]
  - Rectal haemorrhage [Unknown]
  - Intestinal ischaemia [Unknown]
  - Peripheral ischaemia [Unknown]
  - Sepsis [Unknown]
  - Off label use [Unknown]
